FAERS Safety Report 4573591-8 (Version None)
Quarter: 2005Q1

REPORT INFORMATION
  Report Type: 
  Country: None (occurrence: None)
  Receive Date: 20050208
  Receipt Date: 20040920
  Transmission Date: 20050727
  Serious: No
  Sender: FDA-Public Use
  Company Number: US013626

PATIENT
  Sex: Male

DRUGS (5)
  1. PAXIL [Suspect]
     Indication: DEPRESSION
     Dosage: 40MG UNKNOWN
     Route: 048
     Dates: start: 19990101
  2. PROVIGIL [Suspect]
     Indication: HYPOMETABOLISM
     Dosage: 200MG PER DAY
     Route: 048
     Dates: start: 20040713
  3. ZYPREXA [Suspect]
     Indication: SCHIZOPHRENIA
     Dosage: 5MG TWICE PER DAY
     Route: 048
     Dates: start: 19980101
  4. KLONOPIN [Suspect]
     Indication: ANXIETY
     Dosage: .5MG UNKNOWN
     Route: 048
     Dates: start: 19960101
  5. TOBRAMYCIN [Suspect]
     Indication: DRUG USE FOR UNKNOWN INDICATION
     Dosage: 100MG UNKNOWN
     Route: 048
     Dates: start: 20010101

REACTIONS (2)
  - DRUG INTERACTION [None]
  - PARANOIA [None]
